FAERS Safety Report 10191328 (Version 1)
Quarter: 2014Q2

REPORT INFORMATION
  Report Type: Spontaneous
  Country: US (occurrence: None)
  Receive Date: 20140522
  Receipt Date: 20140522
  Transmission Date: 20141212
  Serious: Yes (Other)
  Sender: FDA-Public Use
  Company Number: None

PATIENT
  Age: 58 Year
  Sex: Male
  Weight: 83.92 kg

DRUGS (1)
  1. OXYCODONE AND ACETAMINOPHEN [Suspect]
     Dosage: 1PILL
     Route: 048

REACTIONS (5)
  - Drug effect decreased [None]
  - Gastrointestinal disorder [None]
  - Post-traumatic stress disorder [None]
  - Condition aggravated [None]
  - Product substitution issue [None]
